FAERS Safety Report 6723595-1 (Version None)
Quarter: 2010Q2

REPORT INFORMATION
  Report Type: 
  Country: None (occurrence: None)
  Receive Date: 20100513
  Receipt Date: 20100507
  Transmission Date: 20101027
  Serious: Yes (Hospitalization)
  Sender: FDA-Public Use
  Company Number: JP-SANOFI-AVENTIS-2010SA023484

PATIENT
  Age: 11 Year
  Sex: Male
  Weight: 34 kg

DRUGS (3)
  1. ALLEGRA [Suspect]
     Indication: URTICARIA
     Route: 048
     Dates: start: 20091215, end: 20091216
  2. DOMPERIDONE [Concomitant]
     Route: 048
     Dates: start: 20091215
  3. ACETAMINOPHEN [Concomitant]
     Indication: PYREXIA
     Route: 048
     Dates: start: 20091215

REACTIONS (2)
  - HEPATIC FUNCTION ABNORMAL [None]
  - URTICARIA [None]
